FAERS Safety Report 6024255-5 (Version None)
Quarter: 2008Q4

REPORT INFORMATION
  Report Type: 
  Country: None (occurrence: None)
  Receive Date: 20081229
  Receipt Date: 20081219
  Transmission Date: 20090506
  Serious: Yes (Death)
  Sender: FDA-Public Use
  Company Number: 2008SP025891

PATIENT
  Age: 72 Year
  Sex: Female
  Weight: 54 kg

DRUGS (6)
  1. MOMETASONE FUROATE [Suspect]
     Indication: CHRONIC OBSTRUCTIVE PULMONARY DISEASE
     Dosage: 400 MCG; BID;  PO
     Route: 048
     Dates: start: 20081104, end: 20081118
  2. MOMETASONE FUROATE [Suspect]
  3. MOMETASONE FUROATE [Suspect]
  4. MOMETASONE FUROATE [Suspect]
  5. MOMETASONE FUROATE [Suspect]
  6. MOMETASONE FUROATE [Suspect]

REACTIONS (1)
  - SUDDEN DEATH [None]
